FAERS Safety Report 12603429 (Version 3)
Quarter: 2016Q4

REPORT INFORMATION
  Report Type: Report from Study
  Country: BR (occurrence: BR)
  Receive Date: 20160728
  Receipt Date: 20161019
  Transmission Date: 20170207
  Serious: Yes (Hospitalization, Other)
  Sender: FDA-Public Use
  Company Number: PHHY2016BR101477

PATIENT
  Sex: Female
  Weight: 64 kg

DRUGS (5)
  1. ENALAPRIL [Concomitant]
     Active Substance: ENALAPRIL
     Indication: HYPERTENSION
     Dosage: 2 DF, QD
     Route: 048
  2. DIOSMIN [Concomitant]
     Active Substance: DIOSMIN
     Indication: PAIN IN EXTREMITY
     Dosage: 2 DF, QD
     Route: 048
  3. FUROSEMIDA//FUROSEMIDE [Concomitant]
     Indication: PRODUCT USED FOR UNKNOWN INDICATION
     Dosage: 1 DF, QD
     Route: 048
  4. SANDOSTATIN LAR DEPOT [Suspect]
     Active Substance: OCTREOTIDE ACETATE
     Indication: HEPATIC CANCER
     Dosage: 20 MG, QMO (EVERY 28 DAYS)
     Route: 030
     Dates: start: 201212
  5. DIOSMIN [Concomitant]
     Active Substance: DIOSMIN
     Indication: VARICOSE VEIN

REACTIONS (16)
  - Urinary tract infection [Recovered/Resolved]
  - Renal disorder [Recovered/Resolved]
  - Weight decreased [Not Recovered/Not Resolved]
  - Asthenia [Recovering/Resolving]
  - Gastrointestinal infection [Unknown]
  - Muscle disorder [Unknown]
  - Product use issue [Unknown]
  - Urinary tract infection [Unknown]
  - Balance disorder [Unknown]
  - Syncope [Unknown]
  - Pyelonephritis [Unknown]
  - Decreased appetite [Recovering/Resolving]
  - Memory impairment [Unknown]
  - Brain hypoxia [Unknown]
  - Apathy [Recovering/Resolving]
  - Gait disturbance [Recovered/Resolved]

NARRATIVE: CASE EVENT DATE: 2013
